FAERS Safety Report 23956154 (Version 1)
Quarter: 2024Q2

REPORT INFORMATION
  Report Type: Spontaneous
  Country: US (occurrence: US)
  Receive Date: 20240610
  Receipt Date: 20240610
  Transmission Date: 20240716
  Serious: Yes (Other)
  Sender: FDA-Public Use
  Company Number: US-BAYER-2024A080369

PATIENT
  Age: 37 Year
  Sex: Female

DRUGS (1)
  1. KYLEENA [Suspect]
     Active Substance: LEVONORGESTREL
     Indication: Contraception
     Dosage: 17.5?G/DAY
     Route: 015
     Dates: start: 20191001, end: 20240521

REACTIONS (22)
  - Clostridium difficile infection [None]
  - Exposure to fungus [Not Recovered/Not Resolved]
  - Eye swelling [None]
  - Swelling face [None]
  - Skin mass [None]
  - Dental caries [None]
  - Gingival recession [None]
  - Dysphagia [None]
  - Neck pain [None]
  - Arthralgia [None]
  - Bone pain [None]
  - Renal pain [None]
  - Spinal pain [None]
  - Back pain [None]
  - Abdominal distension [None]
  - Abdominal pain lower [None]
  - Hypoaesthesia [None]
  - Gout [None]
  - Brain fog [None]
  - Memory impairment [None]
  - Affect lability [None]
  - Libido decreased [None]

NARRATIVE: CASE EVENT DATE: 20240521
